FAERS Safety Report 22336536 (Version 1)
Quarter: 2023Q2

REPORT INFORMATION
  Report Type: Spontaneous
  Country: ZA (occurrence: ZA)
  Receive Date: 20230518
  Receipt Date: 20230518
  Transmission Date: 20230721
  Serious: Yes (Death, Hospitalization)
  Sender: FDA-Public Use
  Company Number: ZA-STRIDES ARCOLAB LIMITED-2023SP007250

PATIENT
  Age: 5 Year
  Sex: Male

DRUGS (8)
  1. ALBENDAZOLE [Suspect]
     Active Substance: ALBENDAZOLE
     Indication: Neurocysticercosis
     Dosage: 15 MILLIGRAM/KILOGRAM/DAY (MONTH^S COURSE)
     Route: 065
  2. ALBENDAZOLE [Suspect]
     Active Substance: ALBENDAZOLE
     Indication: Evidence based treatment
     Dosage: 15 MILLIGRAM/KILOGRAM/DAY (ADDITIONAL MONTH OF THERAPY)
     Route: 065
  3. PRAZIQUANTEL [Suspect]
     Active Substance: PRAZIQUANTEL
     Indication: Neurocysticercosis
     Dosage: 30 MILLIGRAM/KILOGRAM/DAY (MONTH^S COURSE)
     Route: 065
  4. PRAZIQUANTEL [Suspect]
     Active Substance: PRAZIQUANTEL
     Indication: Evidence based treatment
     Dosage: 50 MILLIGRAM/KILOGRAM/DAY (ADDITIONAL MONTH OF THERAPY)
     Route: 065
  5. PREDNISONE [Concomitant]
     Active Substance: PREDNISONE
     Indication: Product used for unknown indication
     Dosage: 1 MG/KG
     Route: 065
  6. PREDNISONE [Concomitant]
     Active Substance: PREDNISONE
     Dosage: UNK, TAPERING OF THE PREDNISONE
     Route: 065
  7. PREDNISONE [Concomitant]
     Active Substance: PREDNISONE
     Dosage: 1 MG/KG, WEANED OF FROM DEXAMETHASONE
     Route: 065
  8. DEXAMETHASONE [Concomitant]
     Active Substance: DEXAMETHASONE
     Indication: Product used for unknown indication
     Dosage: 4 MILLIGRAM, TID (TDS) (HIGH-DOSE)
     Route: 042

REACTIONS (1)
  - Drug ineffective [Fatal]
